FAERS Safety Report 20855796 (Version 3)
Quarter: 2022Q2

REPORT INFORMATION
  Report Type: Report from Study
  Country: CH (occurrence: CH)
  Receive Date: 20220520
  Receipt Date: 20220629
  Transmission Date: 20220721
  Serious: Yes (Hospitalization, Other)
  Sender: FDA-Public Use
  Company Number: CH-ABBVIE-22K-151-4394452-00

PATIENT
  Age: 80 Year
  Sex: Female
  Weight: 73 kg

DRUGS (15)
  1. UPADACITINIB [Suspect]
     Active Substance: UPADACITINIB
     Indication: Rheumatoid arthritis
     Route: 048
     Dates: start: 20190103, end: 20220512
  2. UPADACITINIB [Suspect]
     Active Substance: UPADACITINIB
     Route: 048
     Dates: start: 20220519
  3. EUTHYROX [Concomitant]
     Active Substance: LEVOTHYROXINE SODIUM
     Indication: Autoimmune thyroiditis
     Route: 048
     Dates: start: 2013
  4. ATORVASTATIN [Concomitant]
     Active Substance: ATORVASTATIN
     Indication: Hypercholesterolaemia
     Route: 048
     Dates: start: 2013
  5. METHOTREXATE SODIUM [Concomitant]
     Active Substance: METHOTREXATE SODIUM
     Indication: Rheumatoid arthritis
     Route: 048
     Dates: start: 201301, end: 20210709
  6. METHOTREXATE SODIUM [Concomitant]
     Active Substance: METHOTREXATE SODIUM
     Route: 048
     Dates: start: 20210729, end: 20220512
  7. FOLIC ACID [Concomitant]
     Active Substance: FOLIC ACID
     Indication: Vitamin supplementation
     Route: 048
     Dates: start: 201301, end: 20210709
  8. FOLIC ACID [Concomitant]
     Active Substance: FOLIC ACID
     Route: 048
     Dates: start: 20210729, end: 20220512
  9. IBANDRONATE SODIUM [Concomitant]
     Active Substance: IBANDRONATE SODIUM
     Indication: Osteoporosis prophylaxis
     Route: 048
     Dates: start: 2013
  10. IBUPROFEN [Concomitant]
     Active Substance: IBUPROFEN
     Indication: Rheumatoid arthritis
     Route: 048
     Dates: start: 201810
  11. CALCIUM\CHOLECALCIFEROL [Concomitant]
     Active Substance: CALCIUM\CHOLECALCIFEROL
     Indication: Osteopenia
     Route: 048
     Dates: start: 2013
  12. FLECTOR [Concomitant]
     Active Substance: DICLOFENAC EPOLAMINE
     Indication: Rheumatoid arthritis
     Dosage: 1 PATCH
     Route: 062
     Dates: start: 20181205
  13. PREDNISOLONE [Concomitant]
     Active Substance: PREDNISOLONE
     Indication: Periorbital dermatitis
     Route: 061
     Dates: start: 20211116, end: 20211130
  14. PREDNISOLONE [Concomitant]
     Active Substance: PREDNISOLONE
     Route: 047
     Dates: start: 20220310
  15. ELIDEL [Concomitant]
     Active Substance: PIMECROLIMUS
     Indication: Dermatitis allergic
     Dosage: 1 APPLICATION
     Route: 061
     Dates: start: 20211201

REACTIONS (1)
  - Escherichia urinary tract infection [Recovered/Resolved]

NARRATIVE: CASE EVENT DATE: 20220512
